FAERS Safety Report 25573285 (Version 1)
Quarter: 2025Q3

REPORT INFORMATION
  Report Type: Spontaneous
  Country: US (occurrence: None)
  Receive Date: 20250716
  Receipt Date: 20250716
  Transmission Date: 20251020
  Serious: Yes (Disabling)
  Sender: FDA-CTU
  Company Number: None

PATIENT
  Age: 74 Year
  Sex: Female

DRUGS (19)
  1. ALPRAZOLAM [Suspect]
     Active Substance: ALPRAZOLAM
     Indication: Fibromyalgia
     Dosage: FREQUENCY : EVERY 6 HOURS?
     Route: 048
  2. ALPRAZOLAM [Suspect]
     Active Substance: ALPRAZOLAM
     Indication: Muscle spasms
  3. ALPRAZOLAM [Suspect]
     Active Substance: ALPRAZOLAM
     Indication: Balance disorder
  4. CLONIDINE [Concomitant]
     Active Substance: CLONIDINE
  5. VERAPAMIL [Concomitant]
     Active Substance: VERAPAMIL HYDROCHLORIDE
  6. LOSARTAN [Concomitant]
     Active Substance: LOSARTAN
  7. CREON [Concomitant]
     Active Substance: PANCRELIPASE AMYLASE\PANCRELIPASE LIPASE\PANCRELIPASE PROTEASE
  8. LEVOTHYROXINE [Concomitant]
     Active Substance: LEVOTHYROXINE
  9. STOOL SOFTENER (DOCUSATE) [Concomitant]
     Active Substance: DOCUSATE
  10. Fiber supp. [Concomitant]
  11. MAGNESIUM [Concomitant]
     Active Substance: MAGNESIUM
  12. VITAMIN D3 [Concomitant]
     Active Substance: CHOLECALCIFEROL
  13. KRILL OIL [Concomitant]
     Active Substance: DIETARY SUPPLEMENT\KRILL OIL
  14. VITAMINS [Concomitant]
     Active Substance: VITAMINS
  15. BENFOTIAMINE [Concomitant]
     Active Substance: BENFOTIAMINE
  16. GLUCOSAMINE [Concomitant]
     Active Substance: GLUCOSAMINE
  17. NAC [Concomitant]
  18. Seriphos [Concomitant]
  19. Stevia [Concomitant]

REACTIONS (15)
  - Withdrawal syndrome [None]
  - Insomnia [None]
  - General physical health deterioration [None]
  - Emotional disorder [None]
  - Dyslexia [None]
  - Amnesia [None]
  - Memory impairment [None]
  - Loss of personal independence in daily activities [None]
  - Gait disturbance [None]
  - Fall [None]
  - Foot fracture [None]
  - Thoracic vertebral fracture [None]
  - Neuropathy peripheral [None]
  - Body temperature fluctuation [None]
  - Blood pressure inadequately controlled [None]

NARRATIVE: CASE EVENT DATE: 20161006
